FAERS Safety Report 19742860 (Version 1)
Quarter: 2021Q3

REPORT INFORMATION
  Report Type: Spontaneous
  Country: US (occurrence: US)
  Receive Date: 20210824
  Receipt Date: 20210824
  Transmission Date: 20211014
  Serious: No
  Sender: FDA-Public Use
  Company Number: US-PFIZER INC-2020001711

PATIENT
  Age: 55 Year

DRUGS (1)
  1. PREMARIN [Suspect]
     Active Substance: ESTROGENS, CONJUGATED
     Indication: ATROPHIC VULVOVAGINITIS
     Dosage: 1 G, (USE 1 GM VAGINALLY Q (DAILY) SUNDAY AND THURSDAY HS (TAKE AT BEDTIME))
     Route: 067

REACTIONS (3)
  - Off label use [Unknown]
  - Urinary tract infection [Unknown]
  - Wrong strength [Unknown]
